FAERS Safety Report 5361385-5 (Version None)
Quarter: 2007Q2

REPORT INFORMATION
  Report Type: 
  Country: None (occurrence: None)
  Receive Date: 20070530
  Receipt Date: 20070324
  Transmission Date: 20071010
  Serious: No
  Sender: FDA-Public Use
  Company Number: 2007PV032321

PATIENT
  Sex: Female

DRUGS (2)
  1. BYETTA [Suspect]
     Indication: DRUG USE FOR UNKNOWN INDICATION
     Dosage: 10 MCG; SC
     Route: 058
  2. AUGMENTIN '125' [Suspect]
     Indication: SINUSITIS

REACTIONS (2)
  - DIZZINESS [None]
  - SINUSITIS [None]
